FAERS Safety Report 7473933-X (Version None)
Quarter: 2011Q2

REPORT INFORMATION
  Report Type: 
  Country: None (occurrence: None)
  Receive Date: 20110511
  Receipt Date: 20110502
  Transmission Date: 20111010
  Serious: No
  Sender: FDA-Public Use
  Company Number: US-ABBOTT-11P-163-0722936-00

PATIENT
  Sex: Female
  Weight: 100.79 kg

DRUGS (6)
  1. REYATAZ [Concomitant]
     Indication: HIV INFECTION
  2. HYDROCHLOROTHIAZIDE [Concomitant]
     Indication: HYPERTENSION
  3. NORVIR [Suspect]
     Indication: HIV INFECTION
     Dates: start: 20090101
  4. ATENOLOL [Concomitant]
     Indication: HYPERTENSION
  5. MELPHALAN HYDROCHLORIDE [Suspect]
     Indication: PRODUCT USED FOR UNKNOWN INDICATION
  6. TRUVADA [Concomitant]
     Indication: HIV INFECTION

REACTIONS (3)
  - PRODUCT CONTAMINATION PHYSICAL [None]
  - DYSGEUSIA [None]
  - SWELLING [None]
